FAERS Safety Report 14845623 (Version 11)
Quarter: 2021Q2

REPORT INFORMATION
  Report Type: Spontaneous
  Country: US (occurrence: US)
  Receive Date: 20180504
  Receipt Date: 20210618
  Transmission Date: 20210716
  Serious: No
  Sender: FDA-Public Use
  Company Number: US-PFIZER INC-2018183059

PATIENT
  Age: 87 Year
  Sex: Female

DRUGS (4)
  1. LYRICA [Suspect]
     Active Substance: PREGABALIN
     Indication: PAIN
  2. VANICREAM [Concomitant]
     Active Substance: TITANIUM DIOXIDE\ZINC OXIDE
     Dosage: UNK, WEEKLY (IN 5% MENTHOL CREAM APPLIED TO SKIN)
  3. LYRICA [Suspect]
     Active Substance: PREGABALIN
     Indication: NEUROPATHY PERIPHERAL
     Dosage: 100 MG, 1 CAPSULE FOUR TIMES A DAY
     Route: 048
  4. LYRICA [Suspect]
     Active Substance: PREGABALIN
     Indication: SKIN BURNING SENSATION
     Dosage: 100 MG, THREE TIMES A DAY
     Dates: start: 2009

REACTIONS (2)
  - Hypoacusis [Unknown]
  - Weight increased [Recovered/Resolved]
